FAERS Safety Report 14280785 (Version 4)
Quarter: 2019Q2

REPORT INFORMATION
  Report Type: Report from Study
  Country: MX (occurrence: MX)
  Receive Date: 20171213
  Receipt Date: 20190418
  Transmission Date: 20190711
  Serious: Yes (Other)
  Sender: FDA-Public Use
  Company Number: MX-ORION CORPORATION ORION PHARMA-ENTC2016-0002

PATIENT
  Age: 77 Year
  Sex: Male

DRUGS (14)
  1. STALEVO [Suspect]
     Active Substance: CARBIDOPA\ENTACAPONE\LEVODOPA
     Indication: PARKINSON^S DISEASE
     Dosage: STRENGTH: 125/31.25/200 MG
     Route: 065
  2. STALEVO [Suspect]
     Active Substance: CARBIDOPA\ENTACAPONE\LEVODOPA
     Dosage: STRENGTH: 100/25/200 MG
     Route: 065
  3. STALEVO [Suspect]
     Active Substance: CARBIDOPA\ENTACAPONE\LEVODOPA
     Dosage: STRENGTH: 125/31.25/200 MG
     Route: 065
  4. SIFROL [Concomitant]
     Active Substance: PRAMIPEXOLE
     Route: 065
  5. STALEVO [Suspect]
     Active Substance: CARBIDOPA\ENTACAPONE\LEVODOPA
     Dosage: STRENGTH: 50/12.5/200 MG
     Route: 065
  6. STALEVO [Suspect]
     Active Substance: CARBIDOPA\ENTACAPONE\LEVODOPA
     Dosage: STRENGTH: 50/12.5/200 MG
     Route: 065
     Dates: start: 2015
  7. STALEVO [Suspect]
     Active Substance: CARBIDOPA\ENTACAPONE\LEVODOPA
     Dosage: STRENGTH: 50/12.5/200 MG
     Route: 065
  8. STALEVO [Suspect]
     Active Substance: CARBIDOPA\ENTACAPONE\LEVODOPA
     Dosage: STRENGTH: 50/12.5/200 MG
     Route: 065
  9. STALEVO [Suspect]
     Active Substance: CARBIDOPA\ENTACAPONE\LEVODOPA
     Dosage: STRENGTH: 125/31.25/200 MG
     Route: 065
     Dates: start: 20151210
  10. STALEVO [Suspect]
     Active Substance: CARBIDOPA\ENTACAPONE\LEVODOPA
     Dosage: STRENGTH: 100/25/200 MG; 5 TIMES EVERY 4 HOURS
     Route: 065
  11. STALEVO [Suspect]
     Active Substance: CARBIDOPA\ENTACAPONE\LEVODOPA
     Dosage: STRENGTH: 50/12.5/200 MG; 5 TIMES EVERY 4 HOURS
     Route: 065
  12. ERYTHROMYCIN. [Concomitant]
     Active Substance: ERYTHROMYCIN
     Route: 065
  13. STALEVO [Suspect]
     Active Substance: CARBIDOPA\ENTACAPONE\LEVODOPA
     Dosage: STRENGTH: 100/25/200 MG
     Route: 065
  14. STALEVO [Suspect]
     Active Substance: CARBIDOPA\ENTACAPONE\LEVODOPA
     Dosage: 5 TIMES EVERY 4 HOURS; STRENGTH: 50/12.5/200 MG
     Route: 065

REACTIONS (7)
  - Product prescribing error [Not Recovered/Not Resolved]
  - Somnolence [Unknown]
  - Deafness [Unknown]
  - Product availability issue [Unknown]
  - Product dose omission [Unknown]
  - Visual impairment [Unknown]
  - Wrong technique in product usage process [Not Recovered/Not Resolved]

NARRATIVE: CASE EVENT DATE: 201701
